FAERS Safety Report 5468447-2 (Version None)
Quarter: 2007Q3

REPORT INFORMATION
  Report Type: 
  Country: None (occurrence: None)
  Receive Date: 20070926
  Receipt Date: 20070921
  Transmission Date: 20080115
  Serious: Yes (Other)
  Sender: FDA-Public Use
  Company Number: US-BRISTOL-MYERS SQUIBB COMPANY-13915772

PATIENT
  Sex: Male
  Weight: 67 kg

DRUGS (4)
  1. COUMADIN [Suspect]
     Dosage: DECREASED FROM 18 MG TO 16 MG PER WEEK.
     Dates: start: 20020201
  2. NIZATIDINE [Concomitant]
  3. TOPROL-XL [Concomitant]
     Dosage: INCEREASED TO 50 MG DAILY.
  4. TYLENOL (CAPLET) [Concomitant]

REACTIONS (2)
  - ATRIAL FLUTTER [None]
  - INTERNATIONAL NORMALISED RATIO INCREASED [None]
